FAERS Safety Report 6425153-5 (Version None)
Quarter: 2009Q4

REPORT INFORMATION
  Report Type: 
  Country: None (occurrence: None)
  Receive Date: 20091102
  Receipt Date: 20091102
  Transmission Date: 20100525
  Serious: No
  Sender: FDA-Public Use
  Company Number: None

PATIENT
  Age: 63 Year
  Sex: Male
  Weight: 103.7 kg

DRUGS (1)
  1. TIMOLOL [Suspect]
     Indication: GLAUCOMA
     Dosage: 1 DROPS BID EYE
     Dates: start: 20090309, end: 20090804

REACTIONS (1)
  - BRADYCARDIA [None]
